FAERS Safety Report 6716640-0 (Version None)
Quarter: 2010Q2

REPORT INFORMATION
  Report Type: 
  Country: None (occurrence: None)
  Receive Date: 20100507
  Receipt Date: 20100503
  Transmission Date: 20101027
  Serious: Yes (Other)
  Sender: FDA-Public Use
  Company Number: US-AMGEN-QUU409923

PATIENT
  Sex: Female

DRUGS (2)
  1. NPLATE [Suspect]
     Indication: IDIOPATHIC THROMBOCYTOPENIC PURPURA
     Dates: start: 20081126
  2. IMMU-G [Concomitant]
     Route: 042
     Dates: start: 20080812

REACTIONS (3)
  - ASCITES [None]
  - FLUID RETENTION [None]
  - LOCALISED OEDEMA [None]
